FAERS Safety Report 16673388 (Version 1)
Quarter: 2019Q3

REPORT INFORMATION
  Report Type: Spontaneous
  Country: PL (occurrence: PL)
  Receive Date: 20190806
  Receipt Date: 20190806
  Transmission Date: 20191004
  Serious: Yes (Other)
  Sender: FDA-Public Use
  Company Number: PL-PFIZER INC-2019329737

PATIENT
  Sex: Female

DRUGS (1)
  1. SULFASALAZINE. [Suspect]
     Active Substance: SULFASALAZINE
     Indication: RHEUMATOID ARTHRITIS
     Dosage: UNK

REACTIONS (6)
  - Thermal burn [Unknown]
  - Toxic epidermal necrolysis [Unknown]
  - Mucosal disorder [Unknown]
  - Blindness [Unknown]
  - Corneal degeneration [Unknown]
  - Hypersensitivity [Unknown]
